FAERS Safety Report 9948341 (Version 1)
Quarter: 2014Q1

REPORT INFORMATION
  Report Type: Report from Study
  Country: US (occurrence: US)
  Receive Date: 20140303
  Receipt Date: 20140303
  Transmission Date: 20141002
  Serious: No
  Sender: FDA-Public Use
  Company Number: US-ABBVIE-13P-163-1056795-00

PATIENT
  Age: 66 Year
  Sex: Male

DRUGS (4)
  1. HUMIRA [Suspect]
     Indication: CROHN^S DISEASE
     Route: 058
     Dates: start: 201210
  2. AMLODIPINE [Concomitant]
     Indication: BLOOD PRESSURE
  3. BENAZEPRIL [Concomitant]
     Indication: BLOOD PRESSURE
  4. PREVACID [Concomitant]
     Indication: GASTROOESOPHAGEAL REFLUX DISEASE

REACTIONS (1)
  - Personality change [Not Recovered/Not Resolved]
